FAERS Safety Report 11755619 (Version 2)
Quarter: 2015Q4

REPORT INFORMATION
  Report Type: Spontaneous
  Country: US (occurrence: US)
  Receive Date: 20151119
  Receipt Date: 20151218
  Transmission Date: 20160304
  Serious: Yes (Hospitalization)
  Sender: FDA-Public Use
  Company Number: US-ROXANE LABORATORIES, INC.-2015-RO-01915RO

PATIENT
  Age: 22 Month
  Sex: Male

DRUGS (2)
  1. CEFDINIR. [Concomitant]
     Active Substance: CEFDINIR
     Route: 065
  2. PROPRANOLOL [Suspect]
     Active Substance: PROPRANOLOL\PROPRANOLOL HYDROCHLORIDE
     Indication: ELECTROCARDIOGRAM QT PROLONGED
     Dosage: 36 MG
     Route: 048

REACTIONS (3)
  - Hypoglycaemia [Recovered/Resolved]
  - Product quality issue [Unknown]
  - Drug effect increased [Recovered/Resolved]

NARRATIVE: CASE EVENT DATE: 20151110
